FAERS Safety Report 11616310 (Version 1)
Quarter: 2015Q4

REPORT INFORMATION
  Report Type: Spontaneous
  Country: US (occurrence: US)
  Receive Date: 20151009
  Receipt Date: 20151009
  Transmission Date: 20160304
  Serious: Yes (Other)
  Sender: FDA-Public Use
  Company Number: US-BAYER-2015-438932

PATIENT
  Age: 70 Year
  Sex: Female

DRUGS (1)
  1. ULTRAVIST [Suspect]
     Active Substance: IOPROMIDE
     Dosage: 50 ML, ONCE
     Dates: start: 20150925, end: 20150925

REACTIONS (4)
  - Throat irritation [Recovering/Resolving]
  - Dysphagia [Recovering/Resolving]
  - Dyspnoea [Recovering/Resolving]
  - Chest discomfort [Recovering/Resolving]

NARRATIVE: CASE EVENT DATE: 20150925
